FAERS Safety Report 5669909-5 (Version None)
Quarter: 2008Q1

REPORT INFORMATION
  Report Type: 
  Country: None (occurrence: None)
  Receive Date: 20080317
  Receipt Date: 20080306
  Transmission Date: 20080703
  Serious: Yes (Hospitalization, Other)
  Sender: FDA-Public Use
  Company Number: US-PFIZER INC-2008021303

PATIENT
  Sex: Male
  Weight: 110.2 kg

DRUGS (10)
  1. SUTENT [Suspect]
     Indication: METASTATIC RENAL CELL CARCINOMA
     Route: 048
  2. ACETYLSALICYLIC ACID [Concomitant]
  3. FINASTERIDE [Concomitant]
  4. NEURONTIN [Concomitant]
  5. HYDROCHLOROTHIAZIDE [Concomitant]
  6. METOPROLOL TARTRATE [Concomitant]
  7. NAPROXEN [Concomitant]
  8. NIACIN [Concomitant]
  9. FLUNISOLIDE [Concomitant]
     Route: 055
  10. HYTRIN [Concomitant]

REACTIONS (3)
  - ATRIAL FIBRILLATION [None]
  - BLISTER [None]
  - STOMATITIS [None]
